FAERS Safety Report 5616061-8 (Version None)
Quarter: 2008Q1

REPORT INFORMATION
  Report Type: 
  Country: None (occurrence: None)
  Receive Date: 20080206
  Receipt Date: 20080131
  Transmission Date: 20080703
  Serious: Yes (Other)
  Sender: FDA-Public Use
  Company Number: US-PFIZER INC-2007107930

PATIENT
  Sex: Male

DRUGS (4)
  1. LYRICA [Suspect]
     Indication: PAIN
     Dosage: DAILY DOSE:600MG
  2. LYRICA [Suspect]
     Indication: POST HERPETIC NEURALGIA
  3. NEURONTIN [Suspect]
  4. PERCOCET [Concomitant]

REACTIONS (3)
  - DRUG INEFFECTIVE [None]
  - HYPOAESTHESIA [None]
  - PAIN [None]
